FAERS Safety Report 7059503-6 (Version None)
Quarter: 2010Q4

REPORT INFORMATION
  Report Type: 
  Country: None (occurrence: None)
  Receive Date: 20101025
  Receipt Date: 20101015
  Transmission Date: 20110411
  Serious: Yes (Hospitalization)
  Sender: FDA-Public Use
  Company Number: US-US-EMD SERONO, INC.-7021816

PATIENT
  Sex: Female

DRUGS (2)
  1. REBIF [Suspect]
     Indication: MULTIPLE SCLEROSIS
     Route: 058
     Dates: start: 20101007, end: 20101009
  2. ACETAMINOPHEN [Concomitant]
     Indication: PREMEDICATION

REACTIONS (2)
  - DISEASE PROGRESSION [None]
  - INJECTION SITE HAEMATOMA [None]
